FAERS Safety Report 9165034 (Version 3)
Quarter: 2013Q4

REPORT INFORMATION
  Report Type: Spontaneous
  Country: US (occurrence: US)
  Receive Date: 20130315
  Receipt Date: 20131122
  Transmission Date: 20140711
  Serious: Yes (Hospitalization)
  Sender: FDA-Public Use
  Company Number: US-BAYER-2013-031347

PATIENT
  Age: 49 Year
  Sex: Female
  Weight: 74.83 kg

DRUGS (14)
  1. YAZ [Suspect]
  2. BEYAZ [Suspect]
     Indication: MENSTRUAL CYCLE MANAGEMENT
     Dosage: UNK
     Dates: start: 201112, end: 201203
  3. BEYAZ [Suspect]
     Indication: ACNE
  4. BEYAZ [Suspect]
     Indication: PREMENSTRUAL SYNDROME
  5. HYDROCORTISONE ACEPONATE [Concomitant]
     Dosage: 25 MG, UNK
  6. FLUOXETINE [Concomitant]
     Dosage: 90 MG, UNK
  7. PLAVIX [Concomitant]
  8. ASPIRIN (E.C.) [ACETYLSALICYLIC ACID] [Concomitant]
     Dosage: 325 MG, UNK
  9. PRAVACHOL [Concomitant]
  10. NICOTINE [Concomitant]
  11. MOBIC [Concomitant]
  12. TYLENOL [CHLORPHENAM MAL,DEXTROMET HBR,PARACET,PSEUDOEPH HCL] [Concomitant]
  13. NITROSTAT [Concomitant]
  14. STATIN [Concomitant]

REACTIONS (4)
  - Acute myocardial infarction [None]
  - Injury [None]
  - Pain [None]
  - Emotional distress [None]
